FAERS Safety Report 7138567-5 (Version None)
Quarter: 2010Q4

REPORT INFORMATION
  Report Type: 
  Country: None (occurrence: None)
  Receive Date: 20101118
  Receipt Date: 20101104
  Transmission Date: 20110411
  Serious: Yes (Hospitalization)
  Sender: FDA-Public Use
  Company Number: 1000017258

PATIENT
  Age: 57 Year
  Sex: Male

DRUGS (6)
  1. NEBIVOLOL HCL [Suspect]
     Dosage: 5 MG (5 MG,  1 IN 1 D), ORAL
     Route: 048
     Dates: start: 20100401
  2. TARCEVA [Suspect]
     Indication: LUNG ADENOCARCINOMA
     Dosage: 150 MG (150 MG, 1 IN 1 D), ORAL
     Route: 048
     Dates: start: 20091013, end: 20100727
  3. PLAVIX [Suspect]
     Dosage: 75 MG (75 MG,  1 IN 1 D), ORAL
     Route: 048
     Dates: start: 20100401
  4. PRAXILENE (NAFTIDROFURYL OXALATE) [Suspect]
     Dosage: 400 MG (400 MG,1 IN 1 D), ORAL
     Route: 048
     Dates: start: 20100401
  5. SIMVASTATIN [Suspect]
     Dosage: ORAL
     Route: 048
     Dates: start: 20100401
  6. ZANIDIP (LERCANIDIPINE HYDROCHLORIDE)(LERCANIDIPINE HYDROCHLORIDE) [Concomitant]

REACTIONS (2)
  - INFECTION [None]
  - PANCREATITIS ACUTE [None]
